FAERS Safety Report 9500229 (Version 1)
Quarter: 2013Q3

REPORT INFORMATION
  Report Type: Spontaneous
  Country: MX (occurrence: MX)
  Receive Date: 20130905
  Receipt Date: 20130905
  Transmission Date: 20140515
  Serious: Yes (Other)
  Sender: FDA-Public Use
  Company Number: MX-JNJFOC-20130816814

PATIENT
  Age: 50 Year
  Sex: Female
  Weight: 68 kg

DRUGS (5)
  1. REMICADE [Suspect]
     Indication: RHEUMATOID ARTHRITIS
     Route: 042
  2. REMICADE [Suspect]
     Indication: RHEUMATOID ARTHRITIS
     Route: 042
     Dates: start: 20130828
  3. REMICADE [Suspect]
     Indication: RHEUMATOID ARTHRITIS
     Route: 042
     Dates: start: 201307
  4. DIPHENHYDRAMINE [Concomitant]
     Indication: PREMEDICATION
     Route: 065
  5. HYDROCORTISONE [Concomitant]
     Indication: PREMEDICATION
     Route: 065

REACTIONS (6)
  - Tachycardia [Unknown]
  - Hyperhidrosis [Unknown]
  - Chills [Unknown]
  - Blood pressure abnormal [Recovered/Resolved]
  - Infusion related reaction [Unknown]
  - Body temperature [Unknown]
